FAERS Safety Report 7000410-2 (Version None)
Quarter: 2010Q3

REPORT INFORMATION
  Report Type: 
  Country: None (occurrence: None)
  Receive Date: 20100920
  Receipt Date: 20090923
  Transmission Date: 20110219
  Serious: No
  Sender: FDA-Public Use
  Company Number: US-ASTRAZENECA-2009SE14960

PATIENT
  Age: 54 Year
  Sex: Female

DRUGS (4)
  1. SEROQUEL XR [Suspect]
     Indication: BIPOLAR DISORDER
     Route: 048
     Dates: start: 20090101
  2. LITHIUM [Concomitant]
  3. FLUOXETINE [Concomitant]
  4. BOVINA [Concomitant]

REACTIONS (1)
  - ALOPECIA [None]
